FAERS Safety Report 8471628-7 (Version None)
Quarter: 2012Q2

REPORT INFORMATION
  Report Type: 
  Country: None (occurrence: None)
  Receive Date: 20120627
  Receipt Date: 20120619
  Transmission Date: 20120825
  Serious: Yes (Other)
  Sender: FDA-Public Use
  Company Number: IT-ASTRAZENECA-2012SE41214

PATIENT
  Age: 38 Year
  Sex: Female

DRUGS (3)
  1. SEROQUEL XR [Suspect]
     Indication: SOCIAL PHOBIA
     Route: 048
     Dates: start: 20100101
  2. PAROXETINE HCL [Concomitant]
  3. GABAPENTIN [Concomitant]

REACTIONS (3)
  - PERICARDITIS [None]
  - MYOCARDITIS [None]
  - INTENTIONAL DRUG MISUSE [None]
